FAERS Safety Report 12195724 (Version 1)
Quarter: 2016Q1

REPORT INFORMATION
  Report Type: Spontaneous
  Country: GB (occurrence: GB)
  Receive Date: 20160321
  Receipt Date: 20160321
  Transmission Date: 20160526
  Serious: Yes (Other)
  Sender: FDA-Public Use
  Company Number: GB-PFIZER INC-2016159514

PATIENT
  Age: 32 Year
  Sex: Female
  Weight: 58 kg

DRUGS (2)
  1. MISOPROSTOL. [Suspect]
     Active Substance: MISOPROSTOL
     Indication: ABORTION
     Dosage: 800 UG, UNK
     Route: 048
     Dates: start: 20160102, end: 20160102
  2. MISOPROSTOL. [Suspect]
     Active Substance: MISOPROSTOL
     Dosage: 800 UG, UNK
     Dates: start: 20160124, end: 20160124

REACTIONS (4)
  - Ovarian cyst [Not Recovered/Not Resolved]
  - Abdominal pain [Unknown]
  - Menstruation irregular [Unknown]
  - Product use issue [Unknown]

NARRATIVE: CASE EVENT DATE: 20160121
